FAERS Safety Report 9296976 (Version 1)
Quarter: 2013Q2

REPORT INFORMATION
  Report Type: Report from Study
  Country: TR (occurrence: TR)
  Receive Date: 20130518
  Receipt Date: 20130518
  Transmission Date: 20140414
  Serious: Yes (Hospitalization)
  Sender: FDA-Public Use
  Company Number: TR-US-EMD SERONO, INC.-7210607

PATIENT
  Age: 34 Year
  Sex: Female
  Weight: 89 kg

DRUGS (1)
  1. REBIF [Suspect]
     Indication: MULTIPLE SCLEROSIS
     Route: 058
     Dates: start: 201303, end: 20130325

REACTIONS (2)
  - Blood glucose increased [Recovering/Resolving]
  - Hepatic enzyme increased [Recovering/Resolving]
